FAERS Safety Report 8462875-9 (Version None)
Quarter: 2012Q2

REPORT INFORMATION
  Report Type: 
  Country: None (occurrence: None)
  Receive Date: 20120625
  Receipt Date: 20120613
  Transmission Date: 20120825
  Serious: Yes (Hospitalization)
  Sender: FDA-Public Use
  Company Number: US-ROCHE-1058849

PATIENT
  Sex: Female

DRUGS (3)
  1. PEGASYS [Suspect]
     Indication: HEPATITIS C
     Route: 065
     Dates: start: 20120309
  2. TELAPREVIR [Suspect]
     Indication: HEPATITIS C
     Route: 065
     Dates: start: 20120309
  3. COPEGUS [Suspect]
     Indication: HEPATITIS C
     Route: 065
     Dates: start: 20120309

REACTIONS (10)
  - ALOPECIA [None]
  - SWELLING FACE [None]
  - GAIT DISTURBANCE [None]
  - PRURITUS [None]
  - BLISTER [None]
  - ADVERSE DRUG REACTION [None]
  - ABDOMINAL DISCOMFORT [None]
  - SKIN EXFOLIATION [None]
  - INJECTION SITE DISCOLOURATION [None]
  - FEELING ABNORMAL [None]
